FAERS Safety Report 16460363 (Version 2)
Quarter: 2019Q4

REPORT INFORMATION
  Report Type: Spontaneous
  Country: US (occurrence: US)
  Receive Date: 20190620
  Receipt Date: 20191001
  Transmission Date: 20200122
  Serious: Yes (Other)
  Sender: FDA-Public Use
  Company Number: US-ASTRAZENECA-2019SE89160

PATIENT
  Age: 20167 Day
  Sex: Female
  Weight: 111.1 kg

DRUGS (32)
  1. CARVEDILOL. [Concomitant]
     Active Substance: CARVEDILOL
     Dates: start: 2014
  2. SPIRIVA [Concomitant]
     Active Substance: TIOTROPIUM BROMIDE MONOHYDRATE
     Indication: ASTHMA
  3. AMLODIPINE BESYLATE. [Concomitant]
     Active Substance: AMLODIPINE BESYLATE
  4. CIPROFLOXACIN. [Concomitant]
     Active Substance: CIPROFLOXACIN
  5. NEXIUM [Suspect]
     Active Substance: ESOMEPRAZOLE MAGNESIUM
     Indication: GASTROOESOPHAGEAL REFLUX DISEASE
     Route: 048
     Dates: start: 2004
  6. LOSARTAN. [Concomitant]
     Active Substance: LOSARTAN
  7. CYCLOBENZAPRINE. [Concomitant]
     Active Substance: CYCLOBENZAPRINE
  8. OMEPRAZOLE. [Suspect]
     Active Substance: OMEPRAZOLE
     Indication: GASTROOESOPHAGEAL REFLUX DISEASE
     Route: 065
     Dates: start: 2013
  9. PROTONIX [Suspect]
     Active Substance: PANTOPRAZOLE SODIUM
     Indication: GASTROOESOPHAGEAL REFLUX DISEASE
     Route: 065
     Dates: start: 20050922
  10. FUROSEMIDE. [Concomitant]
     Active Substance: FUROSEMIDE
     Dates: start: 2014, end: 2017
  11. ISOSORBIDE MONONITRATE. [Concomitant]
     Active Substance: ISOSORBIDE MONONITRATE
     Dates: start: 2017
  12. ASPIRIN. [Concomitant]
     Active Substance: ASPIRIN
  13. LISINOPRIL. [Concomitant]
     Active Substance: LISINOPRIL
  14. PROTONIX [Suspect]
     Active Substance: PANTOPRAZOLE SODIUM
     Indication: GASTROOESOPHAGEAL REFLUX DISEASE
     Route: 065
     Dates: start: 2004
  15. ATORVASTATIN [Concomitant]
     Active Substance: ATORVASTATIN
     Indication: HYPERTENSION
     Dates: start: 2014
  16. CETRIZINE [Concomitant]
     Active Substance: CETIRIZINE HYDROCHLORIDE
     Indication: MULTIPLE ALLERGIES
  17. HYDROXYZINE [Concomitant]
     Active Substance: HYDROXYZINE HYDROCHLORIDE
  18. CYCLOBENZAPRINE. [Concomitant]
     Active Substance: CYCLOBENZAPRINE
  19. METOPROLOL TARTRATE. [Concomitant]
     Active Substance: METOPROLOL TARTRATE
  20. NEXIUM [Suspect]
     Active Substance: ESOMEPRAZOLE MAGNESIUM
     Indication: GASTROOESOPHAGEAL REFLUX DISEASE
     Route: 048
     Dates: start: 20130922
  21. VITAMIN D [Concomitant]
     Active Substance: VITAMIN D NOS
     Dates: start: 2014
  22. ALBUTEROL SULFATE. [Concomitant]
     Active Substance: ALBUTEROL SULFATE
  23. ATENOLOL. [Concomitant]
     Active Substance: ATENOLOL
  24. AMOXICILLIN. [Concomitant]
     Active Substance: AMOXICILLIN
  25. LEVOTHYROXINE. [Concomitant]
     Active Substance: LEVOTHYROXINE
     Dates: start: 2015, end: 2017
  26. CARDIZEM [Concomitant]
     Active Substance: DILTIAZEM HYDROCHLORIDE
  27. COREG [Concomitant]
     Active Substance: CARVEDILOL
  28. XOPENEX [Concomitant]
     Active Substance: LEVALBUTEROL HYDROCHLORIDE
  29. PREDNISONE. [Concomitant]
     Active Substance: PREDNISONE
  30. AZITHROMYCIN ANHYDROUS. [Concomitant]
     Active Substance: AZITHROMYCIN ANHYDROUS
  31. NYSTATIN. [Concomitant]
     Active Substance: NYSTATIN
  32. LORATADINE. [Concomitant]
     Active Substance: LORATADINE

REACTIONS (4)
  - Renal failure [Unknown]
  - Chronic kidney disease [Not Recovered/Not Resolved]
  - Hyperparathyroidism secondary [Unknown]
  - Acute kidney injury [Unknown]

NARRATIVE: CASE EVENT DATE: 20140402
